FAERS Safety Report 11585184 (Version 4)
Quarter: 2018Q2

REPORT INFORMATION
  Report Type: Report from Study
  Country: US (occurrence: US)
  Receive Date: 20151001
  Receipt Date: 20180529
  Transmission Date: 20180711
  Serious: Yes (Hospitalization)
  Sender: FDA-Public Use
  Company Number: US-ACTELION-A-NJ2015-124641

PATIENT
  Age: 36 Year
  Sex: Male

DRUGS (11)
  1. FLUOXETINE [Concomitant]
     Active Substance: FLUOXETINE HYDROCHLORIDE
  2. SILDENAFIL. [Concomitant]
     Active Substance: SILDENAFIL
  3. METOPROLOL. [Concomitant]
     Active Substance: METOPROLOL
  4. SEPTRA DS [Concomitant]
     Active Substance: SULFAMETHOXAZOLE\TRIMETHOPRIM
  5. PROMETHAZINE [Concomitant]
     Active Substance: PROMETHAZINE\PROMETHAZINE HYDROCHLORIDE
  6. OPSUMIT [Suspect]
     Active Substance: MACITENTAN
     Indication: PULMONARY HYPERTENSION
     Dosage: 10 MG, QD
     Route: 048
     Dates: start: 20151209
  7. JADENU [Concomitant]
     Active Substance: DEFERASIROX
  8. MS CONTIN [Concomitant]
     Active Substance: MORPHINE SULFATE
  9. PRADAXA [Concomitant]
     Active Substance: DABIGATRAN ETEXILATE MESYLATE
  10. HYDROXYUREA. [Concomitant]
     Active Substance: HYDROXYUREA
  11. FOLIC ACID. [Concomitant]
     Active Substance: FOLIC ACID

REACTIONS (9)
  - Cardiac disorder [Unknown]
  - Respiratory failure [Unknown]
  - Dyspnoea [Unknown]
  - Pain [Unknown]
  - Pneumonia [Unknown]
  - Unresponsive to stimuli [Unknown]
  - Sickle cell disease [Unknown]
  - Sickle cell anaemia with crisis [Unknown]
  - Sputum abnormal [Unknown]

NARRATIVE: CASE EVENT DATE: 20170726
